FAERS Safety Report 22270119 (Version 1)
Quarter: 2023Q2

REPORT INFORMATION
  Report Type: Spontaneous
  Country: FR (occurrence: FR)
  Receive Date: 20230501
  Receipt Date: 20230501
  Transmission Date: 20230721
  Serious: Yes (Death, Other)
  Sender: FDA-Public Use
  Company Number: FR-INCYTE CORPORATION-2023IN003027

PATIENT

DRUGS (9)
  1. TAFASITAMAB [Suspect]
     Active Substance: TAFASITAMAB
     Indication: Diffuse large B-cell lymphoma
     Dosage: 720 MILLIGRAM
     Route: 065
     Dates: end: 20220609
  2. LOXOPROFEN SODIUM [Concomitant]
     Active Substance: LOXOPROFEN SODIUM
     Indication: Hypertension
     Dosage: UNK
     Route: 065
     Dates: start: 20180712
  3. PANTOPRAZOLE [Concomitant]
     Active Substance: PANTOPRAZOLE
     Indication: Prophylaxis
     Dosage: UNK
     Route: 065
     Dates: start: 20180712
  4. OXAZEPAM [Concomitant]
     Active Substance: OXAZEPAM
     Indication: Anxiety
     Dosage: UNK
     Route: 065
     Dates: start: 20220225
  5. VALACYCLOVIR HYDROCHLORIDE [Concomitant]
     Active Substance: VALACYCLOVIR HYDROCHLORIDE
     Indication: Product used for unknown indication
     Dosage: UNK
     Route: 065
     Dates: start: 20220225
  6. BACTRIM [Concomitant]
     Active Substance: SULFAMETHOXAZOLE\TRIMETHOPRIM
     Indication: Product used for unknown indication
     Dosage: UNK
     Route: 065
     Dates: start: 20220225
  7. LEUCOVORIN CALCIUM [Concomitant]
     Active Substance: LEUCOVORIN CALCIUM
     Indication: Prophylaxis
     Dosage: UNK
     Route: 065
     Dates: start: 20220225
  8. KARDEGIC [Concomitant]
     Active Substance: ASPIRIN DL-LYSINE
     Indication: Ischaemic cardiomyopathy
     Dosage: UNK
     Route: 065
     Dates: start: 20180712
  9. ATORVASTATIN [Concomitant]
     Active Substance: ATORVASTATIN
     Indication: Ischaemic cardiomyopathy
     Dosage: UNK
     Route: 065
     Dates: start: 20180712

REACTIONS (2)
  - Diffuse large B-cell lymphoma [Fatal]
  - Disease progression [Fatal]

NARRATIVE: CASE EVENT DATE: 20170516
